FAERS Safety Report 4788047-7 (Version None)
Quarter: 2005Q4

REPORT INFORMATION
  Report Type: 
  Country: None (occurrence: None)
  Receive Date: 20051003
  Receipt Date: 20050110
  Transmission Date: 20060501
  Serious: Yes (Life-Threatening)
  Sender: FDA-Public Use
  Company Number: SGB1-2004-00548

PATIENT
  Age: 47 Year
  Sex: Female

DRUGS (2)
  1. AGRYLIN [Suspect]
     Indication: THROMBOCYTHAEMIA
     Dosage: 1.5 MG, 2X/DAY: BID, ORAL
     Route: 048
     Dates: start: 19990831, end: 20020404
  2. ASPIRIN [Concomitant]

REACTIONS (1)
  - MYELOFIBROSIS [None]
